FAERS Safety Report 6634324-4 (Version None)
Quarter: 2010Q1

REPORT INFORMATION
  Report Type: 
  Country: None (occurrence: None)
  Receive Date: 20100312
  Receipt Date: 20100312
  Transmission Date: 20100710
  Serious: Yes (Life-Threatening)
  Sender: FDA-Public Use
  Company Number: None

PATIENT
  Age: 60 Year
  Sex: Male
  Weight: 99.3377 kg

DRUGS (1)
  1. BENADRYL [Suspect]
     Indication: URTICARIA
     Dosage: 2 PILLS 4HRS  3 SETS
     Dates: start: 20100204, end: 20100205

REACTIONS (1)
  - SWELLING [None]
